FAERS Safety Report 10373706 (Version 1)
Quarter: 2014Q1

REPORT INFORMATION
  Report Type: Spontaneous
  Country: US (occurrence: None)
  Receive Date: 20140306
  Receipt Date: 20140306
  Transmission Date: 20141002
  Serious: Yes (Other)
  Sender: FDA-Public Use
  Company Number: 163-21880-13083149

PATIENT
  Age: 53 Year
  Sex: Female
  Weight: 63.5 kg

DRUGS (5)
  1. REVLIMID (LENALIDOMIDE) (25 MILLIGRAM, CAPSULES) [Suspect]
     Indication: PLASMA CELL MYELOMA
     Route: 048
     Dates: start: 20070906
  2. DEXAMETHASONE (DEXAMETHASONE) (UNKNOWN) [Concomitant]
  3. MULTIVITAMINS (MULTIVITAMINS) (CAPSULES) [Concomitant]
  4. CALCIUM CITRATE (CALCIUM CITRATE) (UNKNOWN) [Concomitant]
  5. ADULT LOW DOSE ASPIRIN (ACETYLSALICYLIC ACID) (UNKNOWN) [Concomitant]

REACTIONS (1)
  - Somnolence [None]
